FAERS Safety Report 10676743 (Version 2)
Quarter: 2015Q1

REPORT INFORMATION
  Report Type: Spontaneous
  Country: US (occurrence: US)
  Receive Date: 20141226
  Receipt Date: 20150115
  Transmission Date: 20150720
  Serious: No
  Sender: FDA-Public Use
  Company Number: US-B.I. PHARMACEUTICALS,INC./RIDGEFIELD-2014-BI-61129BP

PATIENT
  Age: 70 Year
  Sex: Female
  Weight: 64.86 kg

DRUGS (4)
  1. ATORVASTATIN [Concomitant]
     Active Substance: ATORVASTATIN
     Indication: BLOOD CHOLESTEROL INCREASED
     Dosage: 20 MG
     Route: 048
  2. PRIMIDONE. [Concomitant]
     Active Substance: PRIMIDONE
     Indication: EPILEPSY
     Dosage: 500 MG
     Route: 048
  3. ZONISAMIDE. [Concomitant]
     Active Substance: ZONISAMIDE
     Indication: EPILEPSY
     Dosage: 200 MG
     Route: 048
  4. SPIRIVA [Suspect]
     Active Substance: TIOTROPIUM BROMIDE MONOHYDRATE
     Indication: CHRONIC OBSTRUCTIVE PULMONARY DISEASE
     Dosage: 18 MCG
     Route: 055
     Dates: start: 2009

REACTIONS (3)
  - Drug ineffective [Not Recovered/Not Resolved]
  - Product quality issue [Recovered/Resolved]
  - Eye disorder [Not Recovered/Not Resolved]

NARRATIVE: CASE EVENT DATE: 201411
